FAERS Safety Report 12938113 (Version 7)
Quarter: 2017Q2

REPORT INFORMATION
  Report Type: Spontaneous
  Country: US (occurrence: US)
  Receive Date: 20161114
  Receipt Date: 20170629
  Transmission Date: 20170830
  Serious: Yes (Hospitalization, Other)
  Sender: FDA-Public Use
  Company Number: US-SAOL THERAPEUTICS-2016SAO00956

PATIENT
  Age: 27 Year
  Sex: Female
  Weight: 49.89 kg

DRUGS (8)
  1. LIORESAL [Suspect]
     Active Substance: BACLOFEN
     Indication: MUSCLE SPASTICITY
     Dosage: 400 ?G, \DAY
     Route: 037
     Dates: start: 2012
  2. LIORESAL [Suspect]
     Active Substance: BACLOFEN
     Dosage: 575 ?G, \DAY
     Route: 037
  3. LIORESAL [Suspect]
     Active Substance: BACLOFEN
     Dosage: 574.3 ?G, \DAY
     Route: 037
  4. LIORESAL [Suspect]
     Active Substance: BACLOFEN
     Indication: CEREBRAL PALSY
     Dosage: 600.2 ?G, \DAY
     Route: 037
  5. LIORESAL [Suspect]
     Active Substance: BACLOFEN
     Dosage: 449.7 ?G, \DAY
  6. LIORESAL [Suspect]
     Active Substance: BACLOFEN
     Dosage: 500.5 ?G, \DAY
     Route: 037
     Dates: end: 20170119
  7. GABLOFEN [Suspect]
     Active Substance: BACLOFEN
  8. LIORESAL [Suspect]
     Active Substance: BACLOFEN
     Dosage: 551.1 ?G, \DAY
     Route: 037
     Dates: start: 20170119

REACTIONS (16)
  - Dyskinesia [Not Recovered/Not Resolved]
  - Visual impairment [Unknown]
  - Delirium [Not Recovered/Not Resolved]
  - Suicidal ideation [Unknown]
  - Hallucination [Unknown]
  - Insomnia [Not Recovered/Not Resolved]
  - Thyroid disorder [Not Recovered/Not Resolved]
  - Muscle tightness [Not Recovered/Not Resolved]
  - Therapy non-responder [Unknown]
  - Drug withdrawal syndrome [Recovering/Resolving]
  - Mental status changes [Not Recovered/Not Resolved]
  - Device failure [Recovered/Resolved]
  - Depression [Not Recovered/Not Resolved]
  - Weight decreased [Not Recovered/Not Resolved]
  - Muscle spasticity [Unknown]
  - Decreased appetite [Unknown]

NARRATIVE: CASE EVENT DATE: 20161007
